FAERS Safety Report 16566328 (Version 1)
Quarter: 2019Q3

REPORT INFORMATION
  Report Type: Spontaneous
  Country: US (occurrence: US)
  Receive Date: 20190712
  Receipt Date: 20190712
  Transmission Date: 20191004
  Serious: Yes (Hospitalization, Other)
  Sender: FDA-Public Use
  Company Number: US-MYLANLABS-2019M1064741

PATIENT
  Age: 55 Year
  Sex: Male

DRUGS (5)
  1. APIXABAN [Suspect]
     Active Substance: APIXABAN
     Indication: EMBOLISM VENOUS
     Dosage: FOUR DOSES
     Route: 048
  2. CLOPIDOGREL [Suspect]
     Active Substance: CLOPIDOGREL BISULFATE
     Indication: EMBOLISM VENOUS
     Route: 065
  3. ABACAVIR/LAMIVUDINE                /01788801/ [Concomitant]
     Active Substance: ABACAVIR\LAMIVUDINE
     Indication: HIV INFECTION
     Dosage: ABACAVIR/LAMIVUDINE 600/300MG DAILY
     Route: 065
  4. LOPINAVIR/RITONAVIR [Suspect]
     Active Substance: LOPINAVIR\RITONAVIR
     Indication: HIV INFECTION
     Dosage: LOPINAVIR/RITONAVIR 400/100MG TWICE DAILY
     Route: 065
  5. ASPIRIN                            /00002701/ [Suspect]
     Active Substance: ASPIRIN
     Indication: EMBOLISM VENOUS
     Route: 065

REACTIONS (2)
  - Haemoglobin decreased [Recovering/Resolving]
  - Procedural haemorrhage [Recovered/Resolved]
